FAERS Safety Report 9197832 (Version 5)
Quarter: 2013Q2

REPORT INFORMATION
  Report Type: Report from Study
  Country: US (occurrence: US)
  Receive Date: 20130328
  Receipt Date: 20130617
  Transmission Date: 20140414
  Serious: Yes (Death, Hospitalization)
  Sender: FDA-Public Use
  Company Number: US-ACTELION-A-NJ2013-78879

PATIENT
  Age: 62 Year
  Sex: Female

DRUGS (3)
  1. VENTAVIS [Suspect]
     Indication: PULMONARY ARTERIAL HYPERTENSION
     Dosage: UNK
     Route: 055
  2. SILDENAFIL [Concomitant]
  3. COUMADIN [Concomitant]

REACTIONS (7)
  - Death [Fatal]
  - Lung disorder [Unknown]
  - Lung infection [Unknown]
  - White blood cell count increased [Unknown]
  - Pneumonia [Unknown]
  - Dyspnoea [Unknown]
  - Drug dose omission [Unknown]
